FAERS Safety Report 15771143 (Version 2)
Quarter: 2019Q1

REPORT INFORMATION
  Report Type: Report from Study
  Country: US (occurrence: US)
  Receive Date: 20181228
  Receipt Date: 20190104
  Transmission Date: 20190417
  Serious: Yes (Death, Other)
  Sender: FDA-Public Use
  Company Number: US-GILEAD-2018-0382119

PATIENT
  Age: 78 Year
  Sex: Female
  Weight: 55.78 kg

DRUGS (18)
  1. LEVOTHYROXINE. [Concomitant]
     Active Substance: LEVOTHYROXINE
  2. CALCIUM +D3 [Concomitant]
     Active Substance: CALCIUM\CHOLECALCIFEROL
  3. OXYGEN. [Concomitant]
     Active Substance: OXYGEN
  4. CYMBALTA [Concomitant]
     Active Substance: DULOXETINE HYDROCHLORIDE
  5. LASIX [Concomitant]
     Active Substance: FUROSEMIDE
  6. PRILOSEC [Concomitant]
     Active Substance: OMEPRAZOLE MAGNESIUM
  7. MS CONTIN [Concomitant]
     Active Substance: MORPHINE SULFATE
  8. POTASSIUM CHLORIDE. [Concomitant]
     Active Substance: POTASSIUM CHLORIDE
  9. FLUTICASONE. [Concomitant]
     Active Substance: FLUTICASONE
  10. ADCIRCA [Concomitant]
     Active Substance: TADALAFIL
  11. VOLTAREN [Concomitant]
     Active Substance: DICLOFENAC SODIUM
  12. COLACE [Concomitant]
     Active Substance: DOCUSATE SODIUM
  13. DOK [Concomitant]
     Active Substance: DOCUSATE SODIUM
  14. NEURONTIN [Concomitant]
     Active Substance: GABAPENTIN
  15. PLAQUENIL [Concomitant]
     Active Substance: HYDROXYCHLOROQUINE SULFATE
  16. AMBRISENTAN [Suspect]
     Active Substance: AMBRISENTAN
     Indication: PULMONARY HYPERTENSION
     Dosage: 10 MG, QD
     Route: 048
  17. ASPIRIN (E.C.) [Concomitant]
     Active Substance: ASPIRIN
  18. MOVANTIK [Concomitant]
     Active Substance: NALOXEGOL OXALATE

REACTIONS (1)
  - Death [Fatal]

NARRATIVE: CASE EVENT DATE: 20181218
